FAERS Safety Report 4341962-0 (Version None)
Quarter: 2004Q2

REPORT INFORMATION
  Report Type: 
  Country: None (occurrence: None)
  Receive Date: 20040420
  Receipt Date: 20040407
  Transmission Date: 20050107
  Serious: Yes (Hospitalization)
  Sender: FDA-Public Use
  Company Number: PHEH2004US03989

PATIENT
  Age: 48 Year
  Sex: Female

DRUGS (7)
  1. TRILEPTAL [Suspect]
     Indication: BIPOLAR II DISORDER
     Dosage: 300 MG, QD
     Route: 048
     Dates: start: 20040317
  2. TRILEPTAL [Suspect]
     Dosage: 300 MG, BID
     Route: 048
     Dates: end: 20040406
  3. GABAPENTIN [Concomitant]
  4. HYDROXYZINE [Concomitant]
  5. CITALOPRAM [Concomitant]
  6. ALBUTEROL [Concomitant]
  7. ^REPERIDEL^ [Concomitant]

REACTIONS (6)
  - ANAPHYLACTIC REACTION [None]
  - DYSPNOEA [None]
  - HYPOXIA [None]
  - INTUBATION [None]
  - RESPIRATORY ARREST [None]
  - URTICARIA [None]
